FAERS Safety Report 8079837-6 (Version None)
Quarter: 2012Q1

REPORT INFORMATION
  Report Type: 
  Country: None (occurrence: None)
  Receive Date: 20120128
  Receipt Date: 20110830
  Transmission Date: 20120608
  Serious: No
  Sender: FDA-Public Use
  Company Number: US-ABBOTT-11P-163-0850786-00

PATIENT
  Sex: Male
  Weight: 90.8 kg

DRUGS (3)
  1. UNNAMED MEDICATIONS [Concomitant]
     Indication: ARTHRITIS
  2. HUMIRA [Suspect]
     Indication: PSORIASIS
     Dates: start: 20100201, end: 20110201
  3. UNNAMED MEDICATION [Concomitant]
     Indication: GOUT

REACTIONS (1)
  - ALOPECIA [None]
